FAERS Safety Report 6556340-3 (Version None)
Quarter: 2010Q1

REPORT INFORMATION
  Report Type: 
  Country: None (occurrence: None)
  Receive Date: 20100128
  Receipt Date: 20091130
  Transmission Date: 20100710
  Serious: Yes (Hospitalization, Other)
  Sender: FDA-Public Use
  Company Number: US-TEVA-216407USA

PATIENT
  Sex: Male

DRUGS (1)
  1. COPAXONE [Suspect]
     Indication: MULTIPLE SCLEROSIS
     Route: 058
     Dates: start: 20090101, end: 20090101

REACTIONS (5)
  - ANAPHYLACTIC SHOCK [None]
  - DRUG ADMINISTRATION ERROR [None]
  - INJECTION SITE INFLAMMATION [None]
  - NON-CARDIAC CHEST PAIN [None]
  - VOMITING [None]
